FAERS Safety Report 8342808-6 (Version None)
Quarter: 2012Q2

REPORT INFORMATION
  Report Type: 
  Country: None (occurrence: None)
  Receive Date: 20120508
  Receipt Date: 20120501
  Transmission Date: 20120825
  Serious: Yes (Hospitalization)
  Sender: FDA-Public Use
  Company Number: FR-AMGEN-FRASP2012027462

PATIENT
  Age: 62 Year
  Sex: Female

DRUGS (6)
  1. NEULASTA [Suspect]
     Indication: CHEMOTHERAPY
     Dosage: UNK
  2. RITUXIMAB [Concomitant]
     Dosage: UNK
     Dates: start: 20120417
  3. DOXORUBICIN HCL [Concomitant]
     Dosage: UNK
     Dates: start: 20120417
  4. PREDNISOLONE [Concomitant]
     Dosage: UNK
     Dates: start: 20120417
  5. VINCRISTINE [Concomitant]
     Dosage: UNK
     Dates: start: 20120417
  6. CYCLOPHOSPHAMIDE [Concomitant]
     Dosage: UNK
     Dates: start: 20120417

REACTIONS (2)
  - FEBRILE BONE MARROW APLASIA [None]
  - DEHYDRATION [None]
